FAERS Safety Report 7880281-2 (Version None)
Quarter: 2011Q4

REPORT INFORMATION
  Report Type: 
  Country: None (occurrence: None)
  Receive Date: 20111101
  Receipt Date: 20111026
  Transmission Date: 20120403
  Serious: No
  Sender: FDA-Public Use
  Company Number: US-PFIZER INC-2011261978

PATIENT
  Sex: Female
  Weight: 75.8 kg

DRUGS (1)
  1. GENOTROPIN [Suspect]
     Indication: DWARFISM
     Dosage: 0.4 MG, 5X/WEEK
     Dates: start: 20110726

REACTIONS (1)
  - HEADACHE [None]
